FAERS Safety Report 18794500 (Version 1)
Quarter: 2021Q1

REPORT INFORMATION
  Report Type: Spontaneous
  Country: JP (occurrence: JP)
  Receive Date: 20210127
  Receipt Date: 20210127
  Transmission Date: 20210419
  Serious: Yes (Other)
  Sender: FDA-Public Use
  Company Number: JP-TOLMAR, INC.-21JP025094

PATIENT
  Age: 60 Year
  Sex: Female

DRUGS (10)
  1. MAGNESIUM SULFATE. [Suspect]
     Active Substance: MAGNESIUM SULFATE
     Indication: MUSCLE RIGIDITY
     Dosage: 2 GRAM, QD
     Route: 042
  2. METRONIDAZOLE. [Suspect]
     Active Substance: METRONIDAZOLE
     Indication: TETANUS
     Dosage: 500 MG, Q 8 HR
     Route: 065
  3. MAGNESIUM SULFATE. [Suspect]
     Active Substance: MAGNESIUM SULFATE
     Indication: SEIZURE
  4. FENTANYL. [Suspect]
     Active Substance: FENTANYL
     Indication: ANALGESIC THERAPY
     Dosage: UNK
     Route: 042
  5. FENTANYL. [Suspect]
     Active Substance: FENTANYL
     Indication: SEDATION
  6. DEXMEDETOMIDINE. [Suspect]
     Active Substance: DEXMEDETOMIDINE
     Indication: SEDATION
  7. DEXMEDETOMIDINE. [Suspect]
     Active Substance: DEXMEDETOMIDINE
     Indication: ANALGESIC THERAPY
     Dosage: UNK
     Route: 042
  8. TETANUS TOXOID [Suspect]
     Active Substance: TETANUS TOXOIDS
     Indication: TETANUS
     Dosage: UNK
     Route: 030
  9. TETANUS TOXOID [Suspect]
     Active Substance: TETANUS TOXOIDS
     Dosage: UNK
     Route: 030
  10. TETANUS IMMUNOGLOBULIN [Suspect]
     Active Substance: HUMAN CLOSTRIDIUM TETANI TOXOID IMMUNE GLOBULIN
     Indication: TETANUS
     Dosage: 4500 INTERNATIONAL UNIT
     Route: 042

REACTIONS (1)
  - Opisthotonus [Recovered/Resolved]
